FAERS Safety Report 11765152 (Version 1)
Quarter: 2015Q4

REPORT INFORMATION
  Report Type: Spontaneous
  Country: US (occurrence: US)
  Receive Date: 20151120
  Receipt Date: 20151120
  Transmission Date: 20160304
  Serious: No
  Sender: FDA-Public Use
  Company Number: US-ELI_LILLY_AND_COMPANY-US201312002177

PATIENT
  Sex: Female

DRUGS (2)
  1. FORTEO [Suspect]
     Active Substance: TERIPARATIDE
     Indication: OSTEOPOROSIS
  2. FORTEO [Suspect]
     Active Substance: TERIPARATIDE
     Indication: OSTEOPOROTIC FRACTURE
     Dosage: UNK
     Route: 065
     Dates: start: 2011, end: 2013

REACTIONS (1)
  - Hair texture abnormal [Unknown]

NARRATIVE: CASE EVENT DATE: 2013
